FAERS Safety Report 6256114-7 (Version None)
Quarter: 2009Q2

REPORT INFORMATION
  Report Type: 
  Country: None (occurrence: None)
  Receive Date: 20090630
  Receipt Date: 20090630
  Transmission Date: 20091009
  Serious: Yes (Life-Threatening, Hospitalization)
  Sender: FDA-Public Use
  Company Number: None

PATIENT
  Age: 59 Year
  Sex: Female
  Weight: 64.4108 kg

DRUGS (2)
  1. PEGINTERFERON ALFA-2B 120 MCG PER 0.5 ML SCHERING-PLOUGH [Suspect]
     Indication: HEPATITIS C
     Dosage: 0.4ML EVERY WEEK SQ
     Route: 058
     Dates: start: 20090106, end: 20090624
  2. REVETOL - RIBAVIRIN - 200 MG CAPSULES SCHERING-PLOUGH [Suspect]
     Dosage: 1000MG DAILY PO
     Route: 048
     Dates: start: 20090106, end: 20090624

REACTIONS (6)
  - AMNESIA [None]
  - CRYING [None]
  - FATIGUE [None]
  - HYPOPHAGIA [None]
  - INSOMNIA [None]
  - MALAISE [None]
